FAERS Safety Report 18846478 (Version 1)
Quarter: 2021Q1

REPORT INFORMATION
  Report Type: Spontaneous
  Country: US (occurrence: US)
  Receive Date: 20210204
  Receipt Date: 20210204
  Transmission Date: 20210419
  Serious: No
  Sender: FDA-Public Use
  Company Number: None

PATIENT
  Age: 62 Year
  Sex: Female
  Weight: 57.6 kg

DRUGS (12)
  1. VERAPAMIL [Concomitant]
     Active Substance: VERAPAMIL HYDROCHLORIDE
  2. LEVOTHYROXINE. [Concomitant]
     Active Substance: LEVOTHYROXINE
  3. CALCIUM [Concomitant]
     Active Substance: CALCIUM
  4. SELENIUM [Concomitant]
     Active Substance: SELENIUM
  5. EMERGEN C WITH VITAMIN B WITH ZINC [Concomitant]
  6. MAGNESIUM [Concomitant]
     Active Substance: MAGNESIUM
  7. SPIRIVA RESPIMAT [Suspect]
     Active Substance: TIOTROPIUM BROMIDE
     Indication: ASTHMA
     Dosage: ?          QUANTITY:60 INHALATION(S);?
     Route: 055
     Dates: start: 20210115, end: 20210201
  8. ACYCLOVIR. [Concomitant]
     Active Substance: ACYCLOVIR
  9. ATORVASTATIN [Concomitant]
     Active Substance: ATORVASTATIN
  10. VITAMIN D [Concomitant]
     Active Substance: VITAMIN D NOS
  11. LEVALBUTEROL. [Concomitant]
     Active Substance: LEVALBUTEROL
  12. CO ENZYME Q?10 [Concomitant]

REACTIONS (4)
  - Dry mouth [None]
  - Vision blurred [None]
  - Middle insomnia [None]
  - Pollakiuria [None]

NARRATIVE: CASE EVENT DATE: 20210201
